FAERS Safety Report 12806741 (Version 1)
Quarter: 2016Q4

REPORT INFORMATION
  Report Type: Spontaneous
  Country: US (occurrence: US)
  Receive Date: 20161004
  Receipt Date: 20161004
  Transmission Date: 20170207
  Serious: No
  Sender: FDA-Public Use
  Company Number: US-JNJFOC-20160808883

PATIENT
  Sex: Female

DRUGS (3)
  1. CHILDRENS SUDAFED NASAL DECONGESTANT [Suspect]
     Active Substance: PSEUDOEPHEDRINE HYDROCHLORIDE
     Indication: EAR CONGESTION
     Dosage: 1 TEASPOON FULL
     Route: 048
  2. CHILDRENS SUDAFED NASAL DECONGESTANT [Suspect]
     Active Substance: PSEUDOEPHEDRINE HYDROCHLORIDE
     Indication: RESPIRATORY TRACT CONGESTION
     Dosage: 1 TEASPOON FULL
     Route: 048
  3. CHILDRENS SUDAFED NASAL DECONGESTANT [Suspect]
     Active Substance: PSEUDOEPHEDRINE HYDROCHLORIDE
     Indication: NASAL CONGESTION
     Dosage: 1 TEASPOON FULL
     Route: 048

REACTIONS (4)
  - Off label use [Unknown]
  - Drug administration error [Unknown]
  - Product use issue [Unknown]
  - Drug administered to patient of inappropriate age [Unknown]
